FAERS Safety Report 13779430 (Version 1)
Quarter: 2017Q3

REPORT INFORMATION
  Report Type: Spontaneous
  Country: US (occurrence: US)
  Receive Date: 20170721
  Receipt Date: 20170721
  Transmission Date: 20171127
  Serious: No
  Sender: FDA-Public Use
  Company Number: US-GLAXOSMITHKLINE-US2017112332

PATIENT
  Sex: Female

DRUGS (11)
  1. TRIMETHOPRIM. [Concomitant]
     Active Substance: TRIMETHOPRIM
  2. AMBIEN [Concomitant]
     Active Substance: ZOLPIDEM TARTRATE
  3. KLONOPIN [Concomitant]
     Active Substance: CLONAZEPAM
  4. LASIX [Concomitant]
     Active Substance: FUROSEMIDE
  5. LEVOTHYROXINE. [Concomitant]
     Active Substance: LEVOTHYROXINE
  6. MS CONTIN [Concomitant]
     Active Substance: MORPHINE SULFATE
  7. ZOCOR [Concomitant]
     Active Substance: SIMVASTATIN
  8. DICYCLOMINE [Concomitant]
     Active Substance: DICYCLOMINE HYDROCHLORIDE
  9. ADVAIR DISKUS [Suspect]
     Active Substance: FLUTICASONE PROPIONATE\SALMETEROL XINAFOATE
     Indication: ASTHMA
     Dosage: 1 PUFF(S), BID
     Route: 055
  10. NARCAN [Concomitant]
     Active Substance: NALOXONE HYDROCHLORIDE
  11. COMBIVENT [Concomitant]
     Active Substance: ALBUTEROL SULFATE\IPRATROPIUM BROMIDE

REACTIONS (5)
  - Muscle spasms [Unknown]
  - Contusion [Unknown]
  - Candida infection [Unknown]
  - Fall [Unknown]
  - Laceration [Unknown]
